FAERS Safety Report 25587116 (Version 2)
Quarter: 2025Q3

REPORT INFORMATION
  Report Type: Spontaneous
  Country: US (occurrence: US)
  Receive Date: 20250721
  Receipt Date: 20250728
  Transmission Date: 20251021
  Serious: No
  Sender: BRISTOL-MYERS SQUIBB COMPANY
  Company Number: US-BRISTOL-MYERS SQUIBB COMPANY-2025-101954

PATIENT
  Age: 81 Year
  Sex: Female
  Weight: 39.92 kg

DRUGS (2)
  1. REVLIMID [Suspect]
     Active Substance: LENALIDOMIDE
     Indication: Breast cancer
     Dosage: 1 CAPSULE DAILY FOR 14 DAYS, THEN 7 DAYS OFF
     Route: 048
     Dates: start: 202411
  2. REVLIMID [Suspect]
     Active Substance: LENALIDOMIDE
     Indication: Plasma cell myeloma

REACTIONS (3)
  - Fatigue [Unknown]
  - Platelet count decreased [Unknown]
  - Product supply issue [Unknown]
